FAERS Safety Report 4560971-X (Version None)
Quarter: 2005Q1

REPORT INFORMATION
  Report Type: 
  Country: None (occurrence: None)
  Receive Date: 20050126
  Receipt Date: 20040414
  Transmission Date: 20050727
  Serious: No
  Sender: FDA-Public Use
  Company Number: US-BRISTOL-MYERS SQUIBB COMPANY-12560488

PATIENT
  Age: 51 Year
  Sex: Female
  Weight: 117 kg

DRUGS (5)
  1. METFORMIN HCL [Suspect]
     Indication: DIABETES MELLITUS
     Route: 048
     Dates: start: 20031219, end: 20040505
  2. SYNTHROID [Concomitant]
  3. METOPROLOL [Concomitant]
  4. PREVACID [Concomitant]
  5. OMEPRAZOLE [Concomitant]

REACTIONS (2)
  - ALOPECIA [None]
  - TRICHORRHEXIS [None]
